FAERS Safety Report 6396019-4 (Version None)
Quarter: 2009Q4

REPORT INFORMATION
  Report Type: 
  Country: None (occurrence: None)
  Receive Date: 20091009
  Receipt Date: 20090929
  Transmission Date: 20100525
  Serious: Yes (Other)
  Sender: FDA-Public Use
  Company Number: DE-ELI_LILLY_AND_COMPANY-DE200707000577

PATIENT
  Sex: Male

DRUGS (8)
  1. ZYPREXA [Suspect]
     Indication: MENTAL DISORDER
     Dates: start: 20010101
  2. ZYPREXA [Suspect]
     Dosage: 10 MG, UNK
  3. ZYPREXA [Suspect]
     Dosage: 15 MG, UNK
     Dates: start: 20030101
  4. ZYPREXA [Suspect]
     Dosage: 20 MG, UNK
  5. TADALAFIL [Concomitant]
  6. CITALOPRAM HYDROBROMIDE [Concomitant]
     Dosage: 20 MG, UNK
     Dates: start: 20070717
  7. DIAZEPAM [Concomitant]
     Dosage: UNK, AS NEEDED
  8. L-THYROXIN [Concomitant]
     Dosage: 50 MG, DAILY (1/D)

REACTIONS (8)
  - ARRHYTHMIA [None]
  - CHILLS [None]
  - FACIAL SPASM [None]
  - FATIGUE [None]
  - HEPATIC ENZYME ABNORMAL [None]
  - HEPATIC STEATOSIS [None]
  - HYPERLIPIDAEMIA [None]
  - WEIGHT INCREASED [None]
